FAERS Safety Report 7709713-7 (Version None)
Quarter: 2011Q3

REPORT INFORMATION
  Report Type: 
  Country: None (occurrence: None)
  Receive Date: 20110825
  Receipt Date: 20110819
  Transmission Date: 20111222
  Serious: Yes (Other)
  Sender: FDA-Public Use
  Company Number: RU-VIIV HEALTHCARE LIMITED-B0741527A

PATIENT
  Sex: Female

DRUGS (4)
  1. COMBIVIR [Suspect]
     Indication: HIV INFECTION
     Route: 048
     Dates: start: 20100520, end: 20100712
  2. SAQUINAVIR [Suspect]
     Indication: HIV INFECTION
     Route: 048
     Dates: start: 20100813, end: 20100930
  3. KALETRA [Suspect]
     Indication: HIV INFECTION
     Route: 048
     Dates: start: 20100520, end: 20100813
  4. ABACAVIR SULFATE AND LAMIVUDINE [Suspect]
     Indication: HIV INFECTION
     Route: 048
     Dates: start: 20100712, end: 20100930

REACTIONS (2)
  - ANAEMIA [None]
  - MATERNAL EXPOSURE DURING PREGNANCY [None]
